FAERS Safety Report 16218834 (Version 1)
Quarter: 2019Q2

REPORT INFORMATION
  Report Type: Spontaneous
  Country: US (occurrence: US)
  Receive Date: 20190419
  Receipt Date: 20190419
  Transmission Date: 20190711
  Serious: No
  Sender: FDA-Public Use
  Company Number: US-UPSHER-SMITH LABORATORIES, LLC-2018USL00540

PATIENT
  Sex: Female
  Weight: 85.26 kg

DRUGS (1)
  1. QUDEXY XR [Suspect]
     Active Substance: TOPIRAMATE
     Indication: ABNORMAL WEIGHT GAIN
     Dosage: 50 MG, 1X/DAY
     Route: 048
     Dates: start: 20180912, end: 20181011

REACTIONS (3)
  - Depressed mood [Recovered/Resolved]
  - Anger [Recovered/Resolved]
  - Headache [Recovered/Resolved]

NARRATIVE: CASE EVENT DATE: 2018
